FAERS Safety Report 4922556-2 (Version None)
Quarter: 2006Q1

REPORT INFORMATION
  Report Type: 
  Country: None (occurrence: None)
  Receive Date: 20060224
  Receipt Date: 20060220
  Transmission Date: 20060701
  Serious: Yes (Other)
  Sender: FDA-Public Use
  Company Number: US-GLAXOSMITHKLINE-A0594405A

PATIENT
  Age: 52 Year
  Sex: Male

DRUGS (13)
  1. WELLBUTRIN XL [Suspect]
     Indication: DEPRESSION
     Dosage: 150MG PER DAY
     Route: 048
  2. WELLBUTRIN [Suspect]
     Indication: SMOKING CESSATION THERAPY
     Route: 048
  3. REQUIP [Concomitant]
  4. ACTONEL [Concomitant]
  5. LIPITOR [Concomitant]
  6. CARDIZEM LA [Concomitant]
  7. ANTABUSE [Concomitant]
  8. SOMA [Concomitant]
  9. ULTRAM [Concomitant]
  10. CIALIS [Concomitant]
  11. M.V.I. [Concomitant]
  12. ASPIRIN [Concomitant]
  13. ALEVE [Concomitant]

REACTIONS (3)
  - DIABETES MELLITUS [None]
  - DRUG INEFFECTIVE [None]
  - TINNITUS [None]
